FAERS Safety Report 10364559 (Version 2)
Quarter: 2014Q3

REPORT INFORMATION
  Report Type: Not Available
  Country: US (occurrence: US)
  Receive Date: 20140806
  Receipt Date: 20140827
  Transmission Date: 20150326
  Serious: Yes (Hospitalization)
  Sender: FDA-Public Use
  Company Number: US-LUPIN PHARMACEUTICALS INC.-E2B_00002337

PATIENT
  Age: 16 Year
  Sex: Male
  Weight: 44.04 kg

DRUGS (3)
  1. ANAFRANIL [Concomitant]
     Active Substance: CLOMIPRAMINE HYDROCHLORIDE
     Indication: PRODUCT USED FOR UNKNOWN INDICATION
  2. METHYLPHENIDATE [Concomitant]
     Active Substance: METHYLPHENIDATE
     Indication: ATTENTION DEFICIT/HYPERACTIVITY DISORDER
  3. QUETIAPINE FUMARATE TABLETS 200 MG [Suspect]
     Active Substance: QUETIAPINE FUMARATE
     Indication: ASPERGER^S DISORDER
     Dates: start: 20140626, end: 20140719

REACTIONS (7)
  - Suicidal behaviour [Not Recovered/Not Resolved]
  - Feeling of despair [Not Recovered/Not Resolved]
  - Product substitution issue [Unknown]
  - Aggression [Not Recovered/Not Resolved]
  - Delusion [Not Recovered/Not Resolved]
  - Homicidal ideation [Not Recovered/Not Resolved]
  - Personality disorder [Not Recovered/Not Resolved]

NARRATIVE: CASE EVENT DATE: 20140718
